FAERS Safety Report 12183987 (Version 1)
Quarter: 2016Q1

REPORT INFORMATION
  Report Type: Spontaneous
  Country: US (occurrence: US)
  Receive Date: 20160316
  Receipt Date: 20160316
  Transmission Date: 20160526
  Serious: No
  Sender: FDA-Public Use
  Company Number: US-GLAXOSMITHKLINE-A0519544A

PATIENT
  Age: 52 Year
  Sex: Male

DRUGS (8)
  1. VASOTEC [Concomitant]
     Active Substance: ENALAPRIL MALEATE
  2. ASPIRIN. [Concomitant]
     Active Substance: ASPIRIN
  3. RANITIDINE [Concomitant]
     Active Substance: RANITIDINE\RANITIDINE HYDROCHLORIDE
  4. COREG [Suspect]
     Active Substance: CARVEDILOL
     Indication: LEFT VENTRICULAR DYSFUNCTION
     Dosage: 12.5 MG, BID
     Route: 048
  5. COREG [Suspect]
     Active Substance: CARVEDILOL
     Indication: CARDIOMYOPATHY
  6. COREG CR [Suspect]
     Active Substance: CARVEDILOL PHOSPHATE
     Indication: CARDIOMYOPATHY
     Dosage: 20 MG, U
     Route: 048
     Dates: start: 2008, end: 20160212
  7. ENALAPRIL [Concomitant]
     Active Substance: ENALAPRIL
  8. ATORVASTATIN [Concomitant]
     Active Substance: ATORVASTATIN

REACTIONS (9)
  - Chest pain [Unknown]
  - Heart rate irregular [Unknown]
  - Arrhythmia [Recovered/Resolved]
  - Drug ineffective [Unknown]
  - Sleep disorder [Recovering/Resolving]
  - Product quality issue [Unknown]
  - Dyspnoea [Recovered/Resolved]
  - Fatigue [Recovered/Resolved]
  - Asthenia [Recovered/Resolved]

NARRATIVE: CASE EVENT DATE: 201601
